FAERS Safety Report 13156628 (Version 2)
Quarter: 2017Q2

REPORT INFORMATION
  Report Type: Spontaneous
  Country: US (occurrence: US)
  Receive Date: 20170126
  Receipt Date: 20170622
  Transmission Date: 20170830
  Serious: No
  Sender: FDA-Public Use
  Company Number: US-TEIKOKU PHARMA USA-TPU2017-00044

PATIENT
  Sex: Female
  Weight: 57.66 kg

DRUGS (15)
  1. PERCOCET [Suspect]
     Active Substance: ACETAMINOPHEN\OXYCODONE HYDROCHLORIDE
     Indication: PAIN
     Dosage: 10/325 MG AND ANOTHER HALF, AS NEEDED.
     Dates: start: 2002
  2. LIPITOR [Concomitant]
     Active Substance: ATORVASTATIN CALCIUM
     Indication: BLOOD CHOLESTEROL
     Dates: start: 2002
  3. LIDOCAINE PATCH [Suspect]
     Active Substance: LIDOCAINE
     Indication: FIBROMYALGIA
  4. LIDODERM [Suspect]
     Active Substance: LIDOCAINE
     Indication: SCIATICA
  5. CLONAZEPAM. [Concomitant]
     Active Substance: CLONAZEPAM
     Indication: ANXIETY
     Dates: start: 2002
  6. LIDODERM [Suspect]
     Active Substance: LIDOCAINE
     Indication: NEURALGIA
  7. LIDODERM [Suspect]
     Active Substance: LIDOCAINE
     Indication: INSOMNIA
  8. LIDODERM [Suspect]
     Active Substance: LIDOCAINE
     Indication: OSTEOARTHRITIS
  9. LIDOCAINE PATCH [Suspect]
     Active Substance: LIDOCAINE
     Indication: BACK PAIN
     Route: 061
  10. LIDODERM [Suspect]
     Active Substance: LIDOCAINE
     Indication: BACK PAIN
     Route: 061
     Dates: start: 2002
  11. LIDOCAINE PATCH [Suspect]
     Active Substance: LIDOCAINE
     Indication: OSTEOARTHRITIS
  12. LIDODERM [Suspect]
     Active Substance: LIDOCAINE
     Indication: SOFT TISSUE DISORDER
  13. LIDODERM [Suspect]
     Active Substance: LIDOCAINE
     Indication: FIBROMYALGIA
  14. EFFEXOR [Concomitant]
     Active Substance: VENLAFAXINE HYDROCHLORIDE
     Indication: DEPRESSION
  15. ELIQUIS [Concomitant]
     Active Substance: APIXABAN
     Indication: THROMBOSIS

REACTIONS (6)
  - Therapeutic response unexpected [Not Recovered/Not Resolved]
  - Thrombosis [Not Recovered/Not Resolved]
  - Injury [Not Recovered/Not Resolved]
  - Nervousness [Unknown]
  - Feeling abnormal [Unknown]
  - Agitation [Unknown]

NARRATIVE: CASE EVENT DATE: 2016
